FAERS Safety Report 5874290-2 (Version None)
Quarter: 2008Q3

REPORT INFORMATION
  Report Type: 
  Country: None (occurrence: None)
  Receive Date: 20080908
  Receipt Date: 20080827
  Transmission Date: 20090109
  Serious: Yes (Death)
  Sender: FDA-Public Use
  Company Number: US-ELI_LILLY_AND_COMPANY-US200808005962

PATIENT
  Age: 80 Year
  Sex: Male

DRUGS (5)
  1. XIGRIS [Suspect]
     Indication: SEPTIC SHOCK
     Dosage: UNK, OTHER
     Route: 042
     Dates: start: 20080801, end: 20080801
  2. ANTIBIOTICS [Concomitant]
  3. EPINEPHRINE [Concomitant]
  4. VASOPRESSIN [Concomitant]
  5. DOBUTAMINE HCL [Concomitant]

REACTIONS (1)
  - DEATH [None]
